FAERS Safety Report 17784962 (Version 1)
Quarter: 2020Q2

REPORT INFORMATION
  Report Type: Spontaneous
  Country: CN (occurrence: CN)
  Receive Date: 20200514
  Receipt Date: 20200514
  Transmission Date: 20200714
  Serious: Yes (Other)
  Sender: FDA-Public Use
  Company Number: CN-PFIZER INC-2020190675

PATIENT
  Age: 62 Year
  Sex: Female
  Weight: 61 kg

DRUGS (8)
  1. CYCLOPHOSPHAMIDE. [Suspect]
     Active Substance: CYCLOPHOSPHAMIDE
     Dosage: 0.6 G, 1X/DAY
     Route: 041
     Dates: start: 20200219, end: 20200220
  2. CYCLOPHOSPHAMIDE. [Suspect]
     Active Substance: CYCLOPHOSPHAMIDE
     Dosage: 0.6 G, 1X/DAY
     Route: 041
     Dates: start: 20200326, end: 20200327
  3. SODIUM CHLORIDE. [Concomitant]
     Active Substance: SODIUM CHLORIDE
     Indication: VEHICLE SOLUTION USE
     Dosage: 100 ML, 1X/DAY
     Route: 041
     Dates: start: 20200326, end: 20200327
  4. MEDROL [Suspect]
     Active Substance: METHYLPREDNISOLONE
     Indication: IMMUNOSUPPRESSION
     Dosage: 28 MG, 1X/DAY
     Route: 048
     Dates: start: 20191112, end: 20200327
  5. CEFODIZIME SODIUM [Suspect]
     Active Substance: CEFODIZIME SODIUM
     Indication: INFECTION
     Dosage: 0.5 G, 2X/DAY
     Route: 041
     Dates: start: 20200321
  6. CYCLOPHOSPHAMIDE. [Suspect]
     Active Substance: CYCLOPHOSPHAMIDE
     Dosage: 0.6 G, 1X/DAY
     Route: 041
     Dates: start: 20191219, end: 20191220
  7. CYCLOPHOSPHAMIDE. [Suspect]
     Active Substance: CYCLOPHOSPHAMIDE
     Indication: IMMUNOSUPPRESSION
     Dosage: 0.6 G, 1X/DAY
     Route: 041
     Dates: start: 20191112, end: 20191112
  8. CYCLOPHOSPHAMIDE. [Suspect]
     Active Substance: CYCLOPHOSPHAMIDE
     Dosage: 0.6 G, 1X/DAY
     Route: 041
     Dates: start: 20200117, end: 20200118

REACTIONS (1)
  - Platelet count decreased [Unknown]

NARRATIVE: CASE EVENT DATE: 20200422
